FAERS Safety Report 9095084 (Version 3)
Quarter: 2013Q2

REPORT INFORMATION
  Report Type: Spontaneous
  Country: RU (occurrence: RU)
  Receive Date: 20130201
  Receipt Date: 20130502
  Transmission Date: 20140414
  Serious: Yes (Other)
  Sender: FDA-Public Use
  Company Number: RU-BAYER-2012-134610

PATIENT
  Age: 34 Year
  Sex: Female

DRUGS (2)
  1. YARINA [Suspect]
     Indication: CONTRACEPTION
     Dosage: UNK
     Route: 048
     Dates: start: 201208, end: 201301
  2. YARINA [Suspect]
     Indication: DYSMENORRHOEA

REACTIONS (4)
  - Gallbladder enlargement [Recovering/Resolving]
  - Hepatomegaly [Recovering/Resolving]
  - Hepatic pain [Recovering/Resolving]
  - Back pain [Recovered/Resolved]
